FAERS Safety Report 17308039 (Version 1)
Quarter: 2020Q1

REPORT INFORMATION
  Report Type: Spontaneous
  Country: US (occurrence: US)
  Receive Date: 20200122
  Receipt Date: 20200122
  Transmission Date: 20200409
  Serious: Yes (Hospitalization)
  Sender: FDA-Public Use
  Company Number: None

PATIENT
  Sex: Male
  Weight: 71.21 kg

DRUGS (8)
  1. CARBOPLATIN 150MG/15ML [Suspect]
     Active Substance: CARBOPLATIN
     Indication: LUNG NEOPLASM MALIGNANT
     Dosage: ?          OTHER FREQUENCY:EVERY 3 WEEKS;?
     Route: 040
     Dates: start: 20191217
  2. NEULASTA [Suspect]
     Active Substance: PEGFILGRASTIM
     Indication: AGRANULOCYTOSIS
     Dosage: ?          OTHER FREQUENCY:EVERY 3 WEEKS;?
     Route: 058
     Dates: start: 20200115
  3. DEXAMETHASONE 4MG [Concomitant]
     Active Substance: DEXAMETHASONE
  4. FOLIC ACID 1MG [Concomitant]
     Active Substance: FOLIC ACID
  5. PROCHLORPERAZINE 10MG [Concomitant]
  6. ATIVAN 0.5MG [Concomitant]
  7. ZOFRAN [Concomitant]
     Active Substance: ONDANSETRON HYDROCHLORIDE
  8. KEYTRUDA 100MG/4ML [Concomitant]

REACTIONS (1)
  - Diverticulitis [None]
